FAERS Safety Report 22723894 (Version 11)
Quarter: 2023Q4

REPORT INFORMATION
  Report Type: Report from Study
  Country: RU (occurrence: RU)
  Receive Date: 20230719
  Receipt Date: 20231128
  Transmission Date: 20240110
  Serious: Yes (Other)
  Sender: FDA-Public Use
  Company Number: RU-002147023-NVSC2023RU154261

PATIENT
  Age: 2 Month
  Sex: Female
  Weight: 3.788 kg

DRUGS (4)
  1. ZOLGENSMA [Suspect]
     Active Substance: ONASEMNOGENE ABEPARVOVEC-XIOI
     Indication: Spinal muscular atrophy
     Dosage: 22 ML, ONCE/SINGLE
     Route: 041
     Dates: start: 20230623, end: 20230623
  2. PREDNISOLONE [Concomitant]
     Active Substance: PREDNISOLONE
     Indication: Product used for unknown indication
     Dosage: 3.75 MG, QD (3/4 TABLETS)
     Route: 048
     Dates: start: 20230622
  3. VIGANTOL [Concomitant]
     Indication: Product used for unknown indication
     Dosage: 2 DRP, QD (1000IU) (DROPS (UNSPECIFIED))
     Route: 048
     Dates: start: 20230622
  4. ESOMEPRAZOLE [Concomitant]
     Active Substance: ESOMEPRAZOLE
     Indication: Product used for unknown indication
     Dosage: 5 MG, BEFORE BED TIME (1/2 SACHET)
     Route: 048
     Dates: start: 20230622

REACTIONS (19)
  - Full blood count abnormal [Recovering/Resolving]
  - Blood potassium increased [Unknown]
  - Eosinophil count decreased [Recovering/Resolving]
  - Basophil count decreased [Recovering/Resolving]
  - Blood chloride decreased [Recovering/Resolving]
  - Monocyte percentage increased [Recovering/Resolving]
  - Monocyte count increased [Recovering/Resolving]
  - Eosinophil percentage decreased [Recovering/Resolving]
  - Fibrin D dimer increased [Recovering/Resolving]
  - Alanine aminotransferase increased [Recovering/Resolving]
  - Neutrophil percentage decreased [Unknown]
  - Blood lactate dehydrogenase increased [Recovered/Resolved]
  - Blood sodium decreased [Unknown]
  - Platelet count increased [Unknown]
  - Mean cell haemoglobin concentration increased [Unknown]
  - Activated partial thromboplastin time prolonged [Unknown]
  - Blood alkaline phosphatase increased [Recovered/Resolved]
  - Prothrombin time prolonged [Unknown]
  - International normalised ratio increased [Unknown]

NARRATIVE: CASE EVENT DATE: 20230624
